FAERS Safety Report 4541911-6 (Version None)
Quarter: 2004Q4

REPORT INFORMATION
  Report Type: 
  Country: None (occurrence: None)
  Receive Date: 20041229
  Receipt Date: 20041229
  Transmission Date: 20050328
  Serious: Yes (Life-Threatening, Hospitalization)
  Sender: FDA-Public Use
  Company Number: None

PATIENT
  Age: 42 Year
  Sex: Male
  Weight: 88.5 kg

DRUGS (3)
  1. COMBIVIR [Suspect]
     Indication: HIV INFECTION
     Dates: start: 20030718, end: 20041130
  2. EFAVIRENZ [Suspect]
     Indication: HIV INFECTION
     Dates: start: 20040527, end: 20041130
  3. NADOLOL [Concomitant]

REACTIONS (4)
  - DIARRHOEA [None]
  - GASTROENTERITIS SHIGELLA [None]
  - RENAL FAILURE [None]
  - RHABDOMYOLYSIS [None]
